FAERS Safety Report 21007064 (Version 2)
Quarter: 2022Q3

REPORT INFORMATION
  Report Type: Report from Study
  Country: DE (occurrence: DE)
  Receive Date: 20220625
  Receipt Date: 20220919
  Transmission Date: 20221026
  Serious: Yes (Hospitalization, Other)
  Sender: FDA-Public Use
  Company Number: DE-TAKEDA-2022TUS041244

PATIENT
  Age: 57 Year
  Sex: Male

DRUGS (77)
  1. TEDUGLUTIDE [Suspect]
     Active Substance: TEDUGLUTIDE
     Indication: Short-bowel syndrome
     Dosage: 1.90 MILLIGRAM, QD
     Route: 042
     Dates: start: 20170511, end: 201711
  2. TEDUGLUTIDE [Suspect]
     Active Substance: TEDUGLUTIDE
     Indication: Short-bowel syndrome
     Dosage: 1.90 MILLIGRAM, QD
     Route: 042
     Dates: start: 20170511, end: 201711
  3. TEDUGLUTIDE [Suspect]
     Active Substance: TEDUGLUTIDE
     Indication: Short-bowel syndrome
     Dosage: 1.90 MILLIGRAM, QD
     Route: 042
     Dates: start: 20170511, end: 201711
  4. TEDUGLUTIDE [Suspect]
     Active Substance: TEDUGLUTIDE
     Indication: Short-bowel syndrome
     Dosage: 1.90 MILLIGRAM, QD
     Route: 042
     Dates: start: 20170511, end: 201711
  5. TEDUGLUTIDE [Suspect]
     Active Substance: TEDUGLUTIDE
     Dosage: 1.90 MILLIGRAM, QD
     Route: 042
     Dates: start: 20171201, end: 201804
  6. TEDUGLUTIDE [Suspect]
     Active Substance: TEDUGLUTIDE
     Dosage: 1.90 MILLIGRAM, QD
     Route: 042
     Dates: start: 20171201, end: 201804
  7. TEDUGLUTIDE [Suspect]
     Active Substance: TEDUGLUTIDE
     Dosage: 1.90 MILLIGRAM, QD
     Route: 042
     Dates: start: 20171201, end: 201804
  8. TEDUGLUTIDE [Suspect]
     Active Substance: TEDUGLUTIDE
     Dosage: 1.90 MILLIGRAM, QD
     Route: 042
     Dates: start: 20171201, end: 201804
  9. LEVOTHYROXINE [Concomitant]
     Active Substance: LEVOTHYROXINE
     Indication: Product used for unknown indication
     Dosage: UNK, QD
     Route: 048
     Dates: start: 20220113
  10. MELATONIN [Concomitant]
     Active Substance: MELATONIN
     Indication: Product used for unknown indication
     Dosage: 2 MILLIGRAM
     Route: 048
     Dates: start: 20220112
  11. MIRTAZAPINE [Concomitant]
     Active Substance: MIRTAZAPINE
     Indication: Adjustment disorder with depressed mood
     Dosage: 45 MILLIGRAM, QD
     Route: 048
     Dates: start: 20220112
  12. EPOETIN ALFA [Concomitant]
     Active Substance: ERYTHROPOIETIN
     Indication: Nephrogenic anaemia
     Dosage: 8000 INTERNATIONAL UNIT, 3/WEEK
     Route: 042
     Dates: start: 20220113
  13. NAPROXEN [Concomitant]
     Active Substance: NAPROXEN
     Indication: Systemic lupus erythematosus
     Dosage: UNK
     Route: 065
     Dates: start: 20220419
  14. HYDROXYCHLOROQUINE SULFATE [Concomitant]
     Active Substance: HYDROXYCHLOROQUINE SULFATE
     Indication: Systemic lupus erythematosus
     Dosage: UNK
     Route: 065
     Dates: start: 202204
  15. FOLIC ACID [Concomitant]
     Active Substance: FOLIC ACID
     Indication: Vitamin supplementation
     Dosage: UNK
     Route: 065
     Dates: start: 20220330
  16. VITAMIN B12 [Concomitant]
     Active Substance: CYANOCOBALAMIN
     Indication: Supplementation therapy
     Dosage: UNK UNK, Q8WEEKS
     Route: 030
     Dates: start: 20140605, end: 20140605
  17. VITAMIN B12 [Concomitant]
     Active Substance: CYANOCOBALAMIN
     Dosage: 1000 MICROGRAM, 1/WEEK
     Route: 030
     Dates: start: 201711, end: 202004
  18. VITAMIN B12 [Concomitant]
     Active Substance: CYANOCOBALAMIN
     Dosage: 1000 MICROGRAM, MONTHLY
     Route: 030
     Dates: start: 20140605, end: 20140605
  19. VITAMIN B12 [Concomitant]
     Active Substance: CYANOCOBALAMIN
     Dosage: UNK UNK, MONTHLY
     Route: 030
     Dates: start: 20220330
  20. CHOLECALCIFEROL [Concomitant]
     Active Substance: CHOLECALCIFEROL
     Indication: Vitamin D deficiency
     Dosage: 20000. INTERNATIONAL UNIT, 1/WEEK
     Route: 048
     Dates: start: 20140605, end: 20220119
  21. CHOLECALCIFEROL [Concomitant]
     Active Substance: CHOLECALCIFEROL
     Dosage: 4 GTT DROPS, QD
     Route: 048
     Dates: start: 20210728, end: 20220330
  22. CHOLECALCIFEROL [Concomitant]
     Active Substance: CHOLECALCIFEROL
     Dosage: 10 GTT DROPS
     Route: 048
     Dates: start: 20220330
  23. MARCUMAR [Concomitant]
     Active Substance: PHENPROCOUMON
     Indication: Hypercoagulation
     Dosage: 3 MILLIGRAM
     Route: 048
     Dates: start: 201710, end: 201711
  24. MARCUMAR [Concomitant]
     Active Substance: PHENPROCOUMON
     Dosage: 3 MILLIGRAM
     Route: 048
     Dates: start: 201905
  25. SODIUM BICARBONATE [Concomitant]
     Active Substance: SODIUM BICARBONATE
     Indication: Blood alkalinisation therapy
     Dosage: 1 GRAM, BID
     Route: 048
     Dates: start: 20140605, end: 2016
  26. SODIUM BICARBONATE [Concomitant]
     Active Substance: SODIUM BICARBONATE
     Dosage: 1 GRAM
     Route: 048
     Dates: start: 2016, end: 2017
  27. SODIUM BICARBONATE [Concomitant]
     Active Substance: SODIUM BICARBONATE
     Dosage: 2 GRAM, BID
     Route: 048
     Dates: start: 2017, end: 2017
  28. SODIUM BICARBONATE [Concomitant]
     Active Substance: SODIUM BICARBONATE
     Dosage: 2 GRAM, BID
     Route: 048
     Dates: start: 2017, end: 2018
  29. SODIUM BICARBONATE [Concomitant]
     Active Substance: SODIUM BICARBONATE
     Dosage: 2 GRAM, BID
     Route: 048
     Dates: start: 2018, end: 2021
  30. SODIUM BICARBONATE [Concomitant]
     Active Substance: SODIUM BICARBONATE
     Dosage: 2 GRAM, BID
     Route: 048
     Dates: start: 20210324
  31. CALCIUM CARBONATE [Concomitant]
     Active Substance: CALCIUM CARBONATE
     Indication: Supplementation therapy
     Dosage: 500 MILLIGRAM
     Route: 048
     Dates: start: 20140605
  32. CALCIUM CARBONATE [Concomitant]
     Active Substance: CALCIUM CARBONATE
     Dosage: 1 MILLIGRAM, TID
     Route: 048
     Dates: start: 201806, end: 20220112
  33. ARANESP [Concomitant]
     Active Substance: DARBEPOETIN ALFA
     Indication: Anaemia
     Dosage: 80 MICROGRAM, 1/WEEK
     Route: 058
     Dates: start: 20160928
  34. Unacid [Concomitant]
     Indication: Thrombophlebitis
     Dosage: UNK
     Route: 065
     Dates: start: 201710, end: 201711
  35. Unacid [Concomitant]
     Indication: Device related infection
     Dosage: UNK
     Route: 065
     Dates: start: 20211211, end: 20211228
  36. Carmen [Concomitant]
     Indication: Hypertension
     Dosage: 10 MILLIGRAM, BID
     Route: 048
     Dates: start: 201712, end: 201801
  37. Carmen [Concomitant]
     Dosage: 10 MILLIGRAM, BID
     Route: 048
     Dates: start: 20180101
  38. MOXONIDINE [Concomitant]
     Active Substance: MOXONIDINE
     Indication: Hypertension
     Dosage: 0.20 MILLIGRAM
     Route: 048
     Dates: start: 201711, end: 201801
  39. MOXONIDINE [Concomitant]
     Active Substance: MOXONIDINE
     Dosage: 0.20 MILLIGRAM
     Route: 048
     Dates: start: 201801
  40. ALFACALCIDOL [Concomitant]
     Active Substance: ALFACALCIDOL
     Indication: Hypocalcaemia
     Dosage: 1 MICROGRAM, QD
     Route: 042
     Dates: start: 201710, end: 201711
  41. ALFACALCIDOL [Concomitant]
     Active Substance: ALFACALCIDOL
     Dosage: 1 MICROGRAM, 3/WEEK
     Route: 042
     Dates: start: 201712
  42. UNSPECIFIED INGREDIENT [Concomitant]
     Active Substance: UNSPECIFIED INGREDIENT
     Indication: Hyperphosphataemia
     Dosage: UNK
     Route: 065
     Dates: start: 201801, end: 201801
  43. FOLIC ACID [Concomitant]
     Active Substance: FOLIC ACID
     Indication: Folate deficiency
     Dosage: 5 MILLIGRAM, QD
     Route: 048
     Dates: start: 201808, end: 201810
  44. FERRIC MALTOL [Concomitant]
     Active Substance: FERRIC MALTOL
     Indication: Iron deficiency
     Dosage: 30 MILLIGRAM, QD
     Route: 048
     Dates: start: 201808, end: 201810
  45. ROCALTROL [Concomitant]
     Active Substance: CALCITRIOL
     Indication: Vitamin D deficiency
     Dosage: 0.50 MICROGRAM, QD
     Route: 048
     Dates: start: 201808, end: 201812
  46. TORSEMIDE [Concomitant]
     Active Substance: TORSEMIDE
     Indication: Renal failure
     Dosage: 50 MILLIGRAM, QD
     Route: 048
     Dates: start: 201806
  47. SPIRONOLACTONE [Concomitant]
     Active Substance: SPIRONOLACTONE
     Indication: Hypervolaemia
     Dosage: 100 MILLIGRAM, QD
     Route: 048
     Dates: start: 201806
  48. CHOLECALCIFEROL [Concomitant]
     Active Substance: CHOLECALCIFEROL
     Indication: Vitamin supplementation
     Dosage: 20000 INTERNATIONAL UNIT, 1/WEEK
     Route: 048
     Dates: start: 201806, end: 20210728
  49. XIPAMIDE [Concomitant]
     Active Substance: XIPAMIDE
     Indication: Prophylaxis
     Dosage: 40 MILLIGRAM, QD
     Route: 048
     Dates: start: 2017, end: 201801
  50. XIPAMIDE [Concomitant]
     Active Substance: XIPAMIDE
     Dosage: 20 MILLIGRAM, QD
     Route: 048
     Dates: start: 20180101
  51. FERRLECIT [Concomitant]
     Active Substance: SODIUM FERRIC GLUCONATE COMPLEX
     Indication: Nephrogenic anaemia
     Dosage: 62.5 MILLIGRAM
     Route: 042
  52. Selenase [Concomitant]
     Indication: Supplementation therapy
     Dosage: 1 MILLIGRAM, QD
     Route: 048
     Dates: start: 201710
  53. Selenase [Concomitant]
     Dosage: 300 MICROGRAM, QD
     Route: 048
     Dates: start: 20220113
  54. NADROPARIN CALCIUM [Concomitant]
     Active Substance: NADROPARIN CALCIUM
     Indication: Anticoagulation drug level
     Dosage: 0.6 MILLILITER, BID
     Route: 058
     Dates: start: 201711, end: 201801
  55. ALUMINUM CHLOROHYDRATE [Concomitant]
     Active Substance: ALUMINUM CHLOROHYDRATE
     Indication: Product used for unknown indication
     Dosage: 600 MILLIGRAM, BID
     Route: 048
     Dates: start: 201801
  56. DOXACOR [Concomitant]
     Indication: Product used for unknown indication
     Dosage: 2 MILLIGRAM, BID
     Route: 048
     Dates: start: 201801
  57. RENAGEL [Concomitant]
     Active Substance: SEVELAMER HYDROCHLORIDE
     Indication: Product used for unknown indication
     Dosage: 1600 MILLIGRAM, TID
     Route: 048
     Dates: start: 201801
  58. CALCIUM ACETATE [Concomitant]
     Active Substance: CALCIUM ACETATE
     Indication: Supplementation therapy
     Dosage: 1900 MILLIGRAM, QID
     Route: 048
     Dates: start: 201801, end: 201806
  59. CALCIUM ACETATE [Concomitant]
     Active Substance: CALCIUM ACETATE
     Dosage: 500 MILLIGRAM, TID
     Route: 048
     Dates: start: 20220112
  60. CALCITRIOL [Concomitant]
     Active Substance: CALCITRIOL
     Indication: Product used for unknown indication
     Dosage: 0.5 MICROGRAM, QD
     Route: 048
     Dates: start: 201801, end: 201812
  61. MOXIFLOXACIN [Concomitant]
     Active Substance: MOXIFLOXACIN
     Indication: Product used for unknown indication
     Dosage: 400 MILLIGRAM, QD
     Route: 048
     Dates: start: 20180115
  62. LOPERAMIDE [Concomitant]
     Active Substance: LOPERAMIDE
     Indication: Product used for unknown indication
     Dosage: 2 MILLIGRAM
     Route: 048
     Dates: start: 201806, end: 20220330
  63. FALITHROM [Concomitant]
     Active Substance: PHENPROCOUMON
     Indication: Anticoagulation drug level
     Dosage: 3 MILLIGRAM
     Route: 048
     Dates: start: 201806, end: 20220112
  64. VANCOMYCIN [Concomitant]
     Active Substance: VANCOMYCIN
     Indication: Sepsis
     Dosage: UNK
     Route: 065
     Dates: start: 20211209, end: 20220108
  65. PIPERACILLIN SODIUM\TAZOBACTAM SODIUM [Concomitant]
     Active Substance: PIPERACILLIN SODIUM\TAZOBACTAM SODIUM
     Indication: Sepsis
     Dosage: 4.5 GRAM
     Route: 065
  66. FLUCONAZOLE [Concomitant]
     Active Substance: FLUCONAZOLE
     Indication: Sepsis
     Dosage: 100 MILLIGRAM
     Route: 065
     Dates: start: 20211019, end: 20211115
  67. BUPRENORPHINE [Concomitant]
     Active Substance: BUPRENORPHINE
     Indication: Pain
     Dosage: 0.2 MILLIGRAM
     Route: 060
     Dates: start: 20220112
  68. DIMENHYDRINATE [Concomitant]
     Active Substance: DIMENHYDRINATE
     Indication: Prophylaxis of nausea and vomiting
     Dosage: 50 MILLIGRAM
     Route: 048
     Dates: start: 20220112
  69. Zink Ascorbate [Concomitant]
     Indication: Supplementation therapy
     Dosage: 10 MILLIGRAM, QD
     Route: 048
     Dates: start: 20220119
  70. HYDROMORPHONE [Concomitant]
     Active Substance: HYDROMORPHONE
     Indication: Pain
     Dosage: 2 MILLIGRAM, BID
     Route: 048
     Dates: start: 20220112
  71. PANTOPRAZOLE [Concomitant]
     Active Substance: PANTOPRAZOLE
     Indication: Prophylaxis
     Dosage: 40 MILLIGRAM, BID
     Route: 048
     Dates: start: 20220112, end: 20220330
  72. PANTOPRAZOLE [Concomitant]
     Active Substance: PANTOPRAZOLE
     Dosage: 30 MILLIGRAM, BID
     Route: 048
     Dates: start: 20220330
  73. ENOXAPARIN [Concomitant]
     Active Substance: ENOXAPARIN
     Indication: Anticoagulation drug level
     Dosage: 4000 INTERNATIONAL UNIT, BID
     Route: 058
     Dates: start: 20220112
  74. PREGABALIN [Concomitant]
     Active Substance: PREGABALIN
     Indication: Pain
     Dosage: 20 MILLIGRAM, QD
     Route: 048
     Dates: start: 20220113
  75. DROPIZOL [Concomitant]
     Indication: Diarrhoea
     Dosage: 10 GTT DROPS
     Route: 048
     Dates: start: 20220330
  76. MAGNESIUM [Concomitant]
     Active Substance: MAGNESIUM
     Indication: Prophylaxis
     Dosage: 300 MILLIGRAM, QD
     Route: 048
     Dates: start: 20220330
  77. ATORVASTATIN [Concomitant]
     Active Substance: ATORVASTATIN
     Indication: Product used for unknown indication
     Dosage: 80 MILLIGRAM, QD
     Route: 065
     Dates: start: 20220330

REACTIONS (1)
  - Blood loss anaemia [Recovered/Resolved]

NARRATIVE: CASE EVENT DATE: 20220601
